FAERS Safety Report 8697941 (Version 2)
Quarter: 2013Q1

REPORT INFORMATION
  Report Type: Spontaneous
  Country: US (occurrence: None)
  Receive Date: 20120717
  Receipt Date: 20121203
  Transmission Date: 20140127
  Serious: Yes (Hospitalization)
  Sender: FDA-Public Use
  Company Number: JPI-P-022378

PATIENT
  Age: 52 Year
  Sex: Male

DRUGS (1)
  1. XYREM [Suspect]
     Indication: INSOMNIA
     Dosage: (3 GM, 2 I N1 D)
     Route: 048
     Dates: start: 20110824, end: 20110915

REACTIONS (8)
  - Fall [None]
  - Accident [None]
  - Haemoptysis [None]
  - Pulmonary embolism [None]
  - Pneumonia [None]
  - Agitation [None]
  - Enuresis [None]
  - Sleep talking [None]
